FAERS Safety Report 6772572-3 (Version None)
Quarter: 2010Q2

REPORT INFORMATION
  Report Type: 
  Country: None (occurrence: None)
  Receive Date: 20100616
  Receipt Date: 20100420
  Transmission Date: 20101027
  Serious: No
  Sender: FDA-Public Use
  Company Number: US-ASTRAZENECA-2010SE11117

PATIENT
  Age: 64 Year
  Sex: Female

DRUGS (15)
  1. PULMICORT RESPULES [Suspect]
     Indication: ASTHMA
     Route: 055
     Dates: start: 20000101
  2. PULMICORT RESPULES [Suspect]
     Route: 055
  3. BROVANA [Concomitant]
  4. PERCODAN-DEMI [Concomitant]
  5. TYLENOL W/ CODEINE NO. 3 [Concomitant]
  6. ARICEPT [Concomitant]
  7. IPRATROPIUM BROMIDE [Concomitant]
  8. LISINOPRIL [Concomitant]
  9. SYNTHROID [Concomitant]
  10. LITHIUM [Concomitant]
  11. LOPRESSOR [Concomitant]
  12. SINGULAIR [Concomitant]
  13. NORTRIPTALINE [Concomitant]
  14. ALBUTEROL [Concomitant]
  15. SIMVUSTATIN [Concomitant]
     Indication: HYPERCHOLESTEROLAEMIA

REACTIONS (2)
  - DIZZINESS [None]
  - VERTIGO [None]
